FAERS Safety Report 5176443-8 (Version None)
Quarter: 2006Q4

REPORT INFORMATION
  Report Type: 
  Country: None (occurrence: None)
  Receive Date: 20061215
  Receipt Date: 20061211
  Transmission Date: 20070319
  Serious: Yes (Other)
  Sender: FDA-Public Use
  Company Number: GR-ROCHE-474661

PATIENT
  Age: 23 Year
  Sex: Female

DRUGS (1)
  1. ROACCUTAN [Suspect]
     Route: 048

REACTIONS (2)
  - LIP DRY [None]
  - MUSCULOSKELETAL CHEST PAIN [None]
